FAERS Safety Report 17857141 (Version 1)
Quarter: 2020Q2

REPORT INFORMATION
  Report Type: Spontaneous
  Country: US (occurrence: US)
  Receive Date: 20200603
  Receipt Date: 20200603
  Transmission Date: 20200714
  Serious: Yes (Death, Other)
  Sender: FDA-Public Use
  Company Number: US-GILEAD-2020-0469657

PATIENT
  Age: 73 Year
  Sex: Male
  Weight: 77 kg

DRUGS (13)
  1. METOPROLOL. [Concomitant]
     Active Substance: METOPROLOL
  2. ASPIRIN [ACETYLSALICYLIC ACID] [Concomitant]
     Active Substance: ASPIRIN
  3. ACETAMINOPHEN. [Concomitant]
     Active Substance: ACETAMINOPHEN
  4. REMDESIVIR. [Suspect]
     Active Substance: REMDESIVIR
     Indication: COVID-19
     Dosage: 200 MG, ONCE
     Route: 042
     Dates: start: 20200524, end: 20200524
  5. ATORVASTATIN [Concomitant]
     Active Substance: ATORVASTATIN
  6. ENOXAPARIN [Concomitant]
     Active Substance: ENOXAPARIN
  7. MONTELUKAST [Concomitant]
     Active Substance: MONTELUKAST SODIUM
  8. AZITHROMYCIN ANHYDROUS. [Concomitant]
     Active Substance: AZITHROMYCIN ANHYDROUS
  9. DONEPEZIL. [Concomitant]
     Active Substance: DONEPEZIL
  10. REMDESIVIR. [Suspect]
     Active Substance: REMDESIVIR
     Dosage: 100 MG ONCE
     Route: 042
     Dates: start: 20200525, end: 20200525
  11. CARBIDOPA AND LEVODOPA [Concomitant]
     Active Substance: CARBIDOPA\LEVODOPA
  12. LISPRO INSULIN [Concomitant]
     Active Substance: INSULIN LISPRO
  13. SOLIFENACIN [Concomitant]
     Active Substance: SOLIFENACIN

REACTIONS (3)
  - Respiratory failure [Fatal]
  - Hypoxia [Fatal]
  - COVID-19 [Fatal]

NARRATIVE: CASE EVENT DATE: 20200525
